FAERS Safety Report 8176337-X (Version None)
Quarter: 2012Q1

REPORT INFORMATION
  Report Type: 
  Country: None (occurrence: None)
  Receive Date: 20120301
  Receipt Date: 20120223
  Transmission Date: 20120608
  Serious: Yes (Hospitalization)
  Sender: FDA-Public Use
  Company Number: US-SP-2011-10520

PATIENT
  Sex: Female

DRUGS (8)
  1. LEVOTHROID [Concomitant]
  2. TUBERSOL [Suspect]
     Indication: TUBERCULIN TEST
     Route: 023
     Dates: start: 20111031, end: 20111031
  3. NASONEX [Concomitant]
  4. SIMVASTATIN [Concomitant]
  5. LUNESTA [Concomitant]
  6. ZYRTEC [Concomitant]
  7. ADACEL [Suspect]
     Indication: IMMUNISATION
     Route: 023
     Dates: start: 20111031, end: 20111031
  8. MICINEX [Concomitant]

REACTIONS (10)
  - VACCINATION SITE PAIN [None]
  - BLISTER [None]
  - INFLAMMATION [None]
  - PAIN [None]
  - INCORRECT DOSE ADMINISTERED [None]
  - OPEN WOUND [None]
  - RASH MACULAR [None]
  - ERYTHEMA [None]
  - CELLULITIS [None]
  - INCORRECT ROUTE OF DRUG ADMINISTRATION [None]
